FAERS Safety Report 9270954 (Version 4)
Quarter: 2013Q3

REPORT INFORMATION
  Report Type: Spontaneous
  Country: JP (occurrence: JP)
  Receive Date: 20130506
  Receipt Date: 20130910
  Transmission Date: 20140515
  Serious: Yes (Life-Threatening, Other)
  Sender: FDA-Public Use
  Company Number: JP-MERCK-1305JPN001354

PATIENT
  Age: 76 Year
  Sex: Male
  Weight: 63 kg

DRUGS (7)
  1. JANUVIA TABLETS 50MG [Suspect]
     Indication: DIABETES MELLITUS
     Dosage: 50 MG, QD
     Route: 048
     Dates: start: 20130209, end: 20130306
  2. JANUVIA TABLETS 50MG [Suspect]
     Dosage: 50 MG 1/1DAY
     Route: 048
     Dates: start: 20130725
  3. PLAVIX [Suspect]
     Indication: MYOCARDIAL INFARCTION
     Dosage: 75 MG, QD
     Route: 048
     Dates: start: 20130209, end: 20130306
  4. MAINTATE [Concomitant]
     Indication: PULSE ABNORMAL
     Dosage: 2.5 MG, QD
     Route: 048
  5. LIPITOR [Concomitant]
     Indication: DYSLIPIDAEMIA
     Dosage: 10 MG, 1/1 DAY
     Route: 048
  6. BAYASPIRIN [Concomitant]
     Indication: MYOCARDIAL INFARCTION
     Dosage: 100MG, QD
     Route: 048
     Dates: end: 20130306
  7. GLIMEPIRIDE [Concomitant]
     Indication: DIABETES MELLITUS
     Dosage: 1 MG,1/1 DAY
     Route: 048
     Dates: start: 20130209, end: 20130306

REACTIONS (1)
  - Rhabdomyolysis [Recovered/Resolved with Sequelae]
